FAERS Safety Report 5143041-1 (Version None)
Quarter: 2006Q4

REPORT INFORMATION
  Report Type: 
  Country: None (occurrence: None)
  Receive Date: 20061103
  Receipt Date: 20051008
  Transmission Date: 20070319
  Serious: Yes (Other)
  Sender: FDA-Public Use
  Company Number: 2005PK02004

PATIENT
  Age: 67 Year
  Sex: Female

DRUGS (1)
  1. CARBOSTESIN 0.5% HYPERBAR [Suspect]
     Indication: ANAESTHESIA
     Route: 037
     Dates: start: 20050201

REACTIONS (3)
  - BIOPSY SPINAL CORD ABNORMAL [None]
  - GRANULOMA [None]
  - SKIN TEST POSITIVE [None]
